FAERS Safety Report 18085031 (Version 1)
Quarter: 2020Q3

REPORT INFORMATION
  Report Type: Spontaneous
  Country: FR (occurrence: FR)
  Receive Date: 20200729
  Receipt Date: 20200729
  Transmission Date: 20201103
  Serious: Yes (Other)
  Sender: FDA-Public Use
  Company Number: NVSC2020FR210400

PATIENT

DRUGS (1)
  1. PAZOPANIB [Suspect]
     Active Substance: PAZOPANIB
     Indication: THYROID CANCER
     Dosage: 800 MG, QD
     Route: 065

REACTIONS (5)
  - Pancreatitis [Unknown]
  - Fatigue [Unknown]
  - Product use in unapproved indication [Unknown]
  - Alopecia [Unknown]
  - Therapy partial responder [Unknown]
